FAERS Safety Report 7929700 (Version 2)
Quarter: 2012Q4

REPORT INFORMATION
  Report Type: 
  Country: VE (occurrence: VE)
  Receive Date: 20110504
  Receipt Date: 20121226
  Transmission Date: 20130627
  Serious: Yes (Other)
  Sender: FDA-Public Use
  Company Number: PHHY2011VE36820

PATIENT
  Age: 68 Year
  Sex: Female

DRUGS (19)
  1. ACLASTA [Suspect]
     Indication: OSTEOPOROSIS
     Dosage: 5 mg annually
     Route: 042
     Dates: start: 20080424
  2. ACLASTA [Suspect]
     Dosage: 5 mg, annually
     Dates: start: 2011
  3. ACLASTA [Suspect]
     Dosage: 5 mg, annually
     Dates: start: 201208
  4. EXELON [Concomitant]
  5. MAXAIR [Concomitant]
  6. ELAVIL [Concomitant]
  7. ANTIDEPRESSANTS [Concomitant]
  8. NAPROSYN [Concomitant]
  9. OMEPRAZOLE [Concomitant]
  10. IMOVANE [Concomitant]
  11. DIURIL [Concomitant]
  12. MICROSER [Concomitant]
  13. LIUBRAN [Concomitant]
  14. PLAVIX [Concomitant]
     Dosage: 75 mg, Udaily
     Route: 048
  15. EUTHYROX [Concomitant]
     Indication: HYPOTHYROIDISM
     Dosage: 125 ug, daily
     Route: 048
  16. DI-EUDRIN [Concomitant]
     Dosage: 12.5 mg, daily
     Route: 048
  17. NEURONTIN [Concomitant]
     Indication: OSTEOARTHRITIS
     Dosage: UNK UKN, UNK
     Route: 048
  18. ZIAC [Concomitant]
     Indication: HYPERTENSION
     Dosage: 10 mg + 6.25 mg daily
     Route: 048
  19. TENSOMAX [Concomitant]
     Indication: HYPERTENSION
     Dosage: UNK UKN, UNK

REACTIONS (3)
  - Bone cyst [Recovered/Resolved]
  - Bone disorder [Recovered/Resolved]
  - Toothache [Recovered/Resolved]
